FAERS Safety Report 7772705-6 (Version None)
Quarter: 2011Q3

REPORT INFORMATION
  Report Type: 
  Country: None (occurrence: None)
  Receive Date: 20110922
  Receipt Date: 20100901
  Transmission Date: 20111222
  Serious: Yes (Other)
  Sender: FDA-Public Use
  Company Number: US-ASTRAZENECA-2009UW16227

PATIENT
  Age: 566 Month
  Sex: Male
  Weight: 113.4 kg

DRUGS (14)
  1. SEROQUEL [Suspect]
     Indication: SCHIZOPHRENIA, PARANOID TYPE
     Route: 048
     Dates: start: 20030301, end: 20070401
  2. SEROQUEL [Suspect]
     Route: 048
     Dates: start: 20030301, end: 20071001
  3. RISPERDAL [Concomitant]
     Dates: start: 20060101, end: 20080101
  4. SEROQUEL [Suspect]
     Indication: SCHIZOPHRENIA
     Route: 048
     Dates: start: 20030301, end: 20070401
  5. SEROQUEL [Suspect]
     Route: 048
     Dates: start: 20030301, end: 20071001
  6. HALDOL [Concomitant]
     Dates: start: 19900101
  7. ZYPREXA [Concomitant]
     Dates: start: 20030822
  8. SEROQUEL [Suspect]
     Route: 048
     Dates: start: 20031007
  9. SEROQUEL [Suspect]
     Indication: POST-TRAUMATIC STRESS DISORDER
     Route: 048
     Dates: start: 20030301, end: 20070401
  10. WELLBUTRIN SR [Concomitant]
     Dates: start: 20030822
  11. SEROQUEL [Suspect]
     Route: 048
     Dates: start: 20030301, end: 20071001
  12. SEROQUEL [Suspect]
     Route: 048
     Dates: start: 20031007
  13. RISPERDAL [Concomitant]
     Dates: start: 20050101, end: 20080101
  14. SEROQUEL [Suspect]
     Route: 048
     Dates: start: 20031007

REACTIONS (6)
  - DIABETES MELLITUS [None]
  - CEREBROVASCULAR ACCIDENT [None]
  - OBESITY [None]
  - ADVERSE DRUG REACTION [None]
  - ERECTILE DYSFUNCTION [None]
  - BLOOD TRIGLYCERIDES INCREASED [None]
